FAERS Safety Report 5467175-7 (Version None)
Quarter: 2007Q3

REPORT INFORMATION
  Report Type: 
  Country: None (occurrence: None)
  Receive Date: 20070925
  Receipt Date: 20070914
  Transmission Date: 20080115
  Serious: Yes (Other)
  Sender: FDA-Public Use
  Company Number: US-AMGEN-KDL243721

PATIENT
  Sex: Female
  Weight: 67.6 kg

DRUGS (6)
  1. ENBREL [Suspect]
     Indication: RHEUMATOID ARTHRITIS
     Route: 058
     Dates: start: 20050401, end: 20070801
  2. PREDNISONE [Concomitant]
     Route: 048
  3. METHOTREXATE [Concomitant]
     Route: 058
  4. FOLIC ACID [Concomitant]
     Route: 048
  5. ACTONEL [Concomitant]
     Route: 048
  6. ADVIL LIQUI-GELS [Concomitant]
     Route: 048

REACTIONS (1)
  - RENAL MASS [None]
